FAERS Safety Report 15272945 (Version 1)
Quarter: 2018Q3

REPORT INFORMATION
  Report Type: Spontaneous
  Country: US (occurrence: US)
  Receive Date: 20180813
  Receipt Date: 20180813
  Transmission Date: 20181010
  Serious: No
  Sender: FDA-Public Use
  Company Number: US-PURDUE-USA-2018-0143279

PATIENT
  Sex: Female

DRUGS (4)
  1. BUTRANS [Suspect]
     Active Substance: BUPRENORPHINE
     Indication: BACK PAIN
  2. BUTRANS [Suspect]
     Active Substance: BUPRENORPHINE
     Indication: PELVIC PAIN
  3. BUTRANS [Suspect]
     Active Substance: BUPRENORPHINE
     Indication: ARTHRALGIA
     Dosage: 7.5 MCG/HR, WEEKLY
     Route: 062
     Dates: start: 20180326
  4. BUTRANS [Suspect]
     Active Substance: BUPRENORPHINE
     Indication: NECK PAIN

REACTIONS (11)
  - Back pain [Recovered/Resolved]
  - Intentional product use issue [Recovered/Resolved]
  - Feeling abnormal [Recovered/Resolved]
  - Paraesthesia oral [Recovered/Resolved]
  - Drug ineffective [Not Recovered/Not Resolved]
  - Product adhesion issue [Unknown]
  - Headache [Recovered/Resolved]
  - Drug withdrawal syndrome [Recovered/Resolved]
  - Pain of skin [Recovered/Resolved]
  - Skin burning sensation [Recovered/Resolved]
  - Neck pain [Recovered/Resolved]

NARRATIVE: CASE EVENT DATE: 20180326
